FAERS Safety Report 11835058 (Version 1)
Quarter: 2015Q4

REPORT INFORMATION
  Report Type: Spontaneous
  Country: US (occurrence: US)
  Receive Date: 20151215
  Receipt Date: 20151215
  Transmission Date: 20160305
  Serious: Yes (Hospitalization, Other)
  Sender: FDA-Public Use
  Company Number: US-ALEMBIC PHARMACUETICALS LIMITED-2015SCAL000862

PATIENT
  Age: 45 Year
  Sex: Male

DRUGS (1)
  1. METRONIDAZOLE. [Suspect]
     Active Substance: METRONIDAZOLE
     Indication: CLOSTRIDIUM DIFFICILE INFECTION
     Dosage: 500 MG, BID (FOR 5 MONTHS)

REACTIONS (4)
  - Neurotoxicity [Recovered/Resolved]
  - Dysarthria [Recovered/Resolved]
  - Toxicity to various agents [Unknown]
  - Limb discomfort [Unknown]
